FAERS Safety Report 19386284 (Version 2)
Quarter: 2021Q3

REPORT INFORMATION
  Report Type: Report from Study
  Country: PL (occurrence: PL)
  Receive Date: 20210607
  Receipt Date: 20210702
  Transmission Date: 20211014
  Serious: Yes (Life-Threatening, Hospitalization)
  Sender: FDA-Public Use
  Company Number: PL-ALLERGAN-2120983US

PATIENT
  Sex: Female
  Weight: 65 kg

DRUGS (2)
  1. DULSEVIA [Concomitant]
     Active Substance: DULOXETINE HYDROCHLORIDE
     Indication: MAJOR DEPRESSION
     Dosage: 90 MG, QD
     Route: 048
     Dates: start: 20210129
  2. CARIPRAZINE HCL 1.5MG CAP (011327X) [Suspect]
     Active Substance: CARIPRAZINE HYDROCHLORIDE
     Indication: MAJOR DEPRESSION
     Dosage: 1.5 MG, QD
     Dates: start: 20210406, end: 20210520

REACTIONS (1)
  - Suicide attempt [Recovered/Resolved]

NARRATIVE: CASE EVENT DATE: 20210530
